FAERS Safety Report 8571078-9 (Version None)
Quarter: 2012Q3

REPORT INFORMATION
  Report Type: 
  Country: None (occurrence: None)
  Receive Date: 20120806
  Receipt Date: 20120731
  Transmission Date: 20120928
  Serious: No
  Sender: FDA-Public Use
  Company Number: US-PFIZER INC-2012186672

PATIENT
  Age: 83 Year
  Sex: Female
  Weight: 80.726 kg

DRUGS (2)
  1. TYLENOL (CAPLET) [Suspect]
     Indication: BACK PAIN
     Dosage: 325 MG, ONLY ONCE
     Dates: start: 20120719, end: 20120719
  2. FLECTOR [Suspect]
     Indication: BACK PAIN
     Dosage: UNK, DAILY AT NIGHT
     Dates: start: 20120720, end: 20120721

REACTIONS (3)
  - NAUSEA [None]
  - VERTIGO [None]
  - DIZZINESS [None]
